FAERS Safety Report 19630880 (Version 3)
Quarter: 2022Q2

REPORT INFORMATION
  Report Type: Spontaneous
  Country: US (occurrence: US)
  Receive Date: 20210728
  Receipt Date: 20220404
  Transmission Date: 20220720
  Serious: No
  Sender: FDA-Public Use
  Company Number: US-SA-SAC20210726000817

PATIENT
  Age: 62 Year
  Sex: Male

DRUGS (21)
  1. FABRAZYME [Suspect]
     Active Substance: AGALSIDASE BETA
     Indication: Fabry^s disease
     Dosage: 80 MG, QOW
     Route: 041
     Dates: start: 20170307
  2. FABRAZYME [Suspect]
     Active Substance: AGALSIDASE BETA
     Indication: Lipidosis
     Dosage: 80 MG, QOW
     Route: 041
     Dates: start: 20200314
  3. FINASTERIDE [Concomitant]
     Active Substance: FINASTERIDE
  4. AMITRIPTYLINE [Concomitant]
     Active Substance: AMITRIPTYLINE
  5. MIRALAX [Concomitant]
     Active Substance: POLYETHYLENE GLYCOL 3350
  6. SODIUM CHLORIDE [Concomitant]
     Active Substance: SODIUM CHLORIDE
  7. EPINEPHRINE [Concomitant]
     Active Substance: EPINEPHRINE
  8. VITAMIN D3 [Concomitant]
     Active Substance: CHOLECALCIFEROL
  9. CALCIUM [Concomitant]
     Active Substance: CALCIUM
  10. CIALIS [Concomitant]
     Active Substance: TADALAFIL
  11. ASPIRIN [Concomitant]
     Active Substance: ASPIRIN
  12. STOOL SOFTENER (DOCUSATE) [Concomitant]
     Active Substance: DOCUSATE
  13. LOSARTAN [Concomitant]
     Active Substance: LOSARTAN
  14. METOPROLOL [Concomitant]
     Active Substance: METOPROLOL
  15. VITAMINS NOS [Concomitant]
     Active Substance: VITAMINS
  16. MAGNESIUM [Concomitant]
     Active Substance: MAGNESIUM
  17. ZINC [Concomitant]
     Active Substance: ZINC
  18. STERILE WATER [Concomitant]
     Active Substance: WATER
  19. NITROGLYCERIN [Concomitant]
     Active Substance: NITROGLYCERIN
  20. BACTRIM [Concomitant]
     Active Substance: SULFAMETHOXAZOLE\TRIMETHOPRIM
  21. LOSARTAN POTASSIUM [Concomitant]
     Active Substance: LOSARTAN POTASSIUM

REACTIONS (2)
  - Headache [Not Recovered/Not Resolved]
  - Tooth extraction [Unknown]

NARRATIVE: CASE EVENT DATE: 20210210
